FAERS Safety Report 9491943 (Version 1)
Quarter: 2013Q3

REPORT INFORMATION
  Report Type: Spontaneous
  Country: GB (occurrence: None)
  Receive Date: 20130827
  Receipt Date: 20130827
  Transmission Date: 20140515
  Serious: Yes (Hospitalization)
  Sender: FDA-Public Use
  Company Number: 2013P1018552

PATIENT
  Age: 27 Year
  Sex: Female

DRUGS (2)
  1. AMOXICILLIN [Suspect]
  2. SULPHASALAZINE [Suspect]
     Indication: ARTHROPATHY

REACTIONS (1)
  - Drug reaction with eosinophilia and systemic symptoms [None]
